FAERS Safety Report 6529974-X (Version None)
Quarter: 2009Q4

REPORT INFORMATION
  Report Type: 
  Country: None (occurrence: None)
  Receive Date: 20091231
  Receipt Date: 20091224
  Transmission Date: 20100525
  Serious: Yes (Life-Threatening, Hospitalization)
  Sender: FDA-Public Use
  Company Number: 8029437

PATIENT
  Sex: Female
  Weight: 21 kg

DRUGS (7)
  1. KEPPRA [Suspect]
     Indication: AMAUROTIC FAMILIAL IDIOCY
     Dosage: (600 MG BID), (VERY LOW DOSE)
     Dates: start: 20070101, end: 20080101
  2. KEPPRA [Suspect]
     Indication: EPILEPSY
     Dosage: (600 MG BID), (VERY LOW DOSE)
     Dates: start: 20070101, end: 20080101
  3. LAMOTRIGINE [Concomitant]
  4. CLOBAZAM [Concomitant]
  5. DOMPERIDONE [Concomitant]
  6. OMEPRAZOLE [Concomitant]
  7. PIZOTIFEN [Concomitant]

REACTIONS (2)
  - CONVULSION [None]
  - PANCREATITIS [None]
